FAERS Safety Report 17904683 (Version 1)
Quarter: 2020Q2

REPORT INFORMATION
  Report Type: Spontaneous
  Country: DE (occurrence: DE)
  Receive Date: 20200617
  Receipt Date: 20200617
  Transmission Date: 20200714
  Serious: Yes (Hospitalization)
  Sender: FDA-Public Use
  Company Number: DE-DRREDDYS-GER/GER/20/0124112

PATIENT
  Age: 27 Year
  Sex: Female
  Weight: 70 kg

DRUGS (1)
  1. CIPROFLOXACIN. [Suspect]
     Active Substance: CIPROFLOXACIN
     Indication: CYSTITIS NONINFECTIVE
     Dosage: 3 MAL TAEGLICH 500 (3 TIMES A DAY 500)
     Route: 048
     Dates: start: 20200513, end: 20200516

REACTIONS (7)
  - Hemiparaesthesia [Not Recovered/Not Resolved]
  - Optic neuritis [Unknown]
  - Pain [Not Recovered/Not Resolved]
  - Restlessness [Unknown]
  - Panic disorder [Unknown]
  - Visual impairment [Not Recovered/Not Resolved]
  - Paraesthesia [Not Recovered/Not Resolved]

NARRATIVE: CASE EVENT DATE: 2020
